FAERS Safety Report 23623726 (Version 1)
Quarter: 2024Q1

REPORT INFORMATION
  Report Type: Report from Study
  Country: ES (occurrence: ES)
  Receive Date: 20240312
  Receipt Date: 20240312
  Transmission Date: 20240410
  Serious: Yes (Hospitalization, Other)
  Sender: FDA-Public Use
  Company Number: ES-BoehringerIngelheim-2024-BI-013153

PATIENT
  Age: 42 Year
  Sex: Female

DRUGS (3)
  1. NEVIRAPINE [Suspect]
     Active Substance: NEVIRAPINE
     Indication: HIV infection
     Dosage: DAILY DOSE: 400 MILLIGRAM(S)
  2. LAMIVUDINE [Concomitant]
     Active Substance: LAMIVUDINE
  3. ZIDOVUDINE [Concomitant]
     Active Substance: ZIDOVUDINE

REACTIONS (2)
  - Drug-induced liver injury [Unknown]
  - Drug reaction with eosinophilia and systemic symptoms [Unknown]
